FAERS Safety Report 25076282 (Version 1)
Quarter: 2025Q1

REPORT INFORMATION
  Report Type: Spontaneous
  Country: US (occurrence: US)
  Receive Date: 20250313
  Receipt Date: 20250313
  Transmission Date: 20250409
  Serious: No
  Sender: PHARMING GROUP
  Company Number: US-PHARMING-PHAUS2025000356

PATIENT

DRUGS (1)
  1. LENIOLISIB [Suspect]
     Active Substance: LENIOLISIB
     Indication: Product used for unknown indication

REACTIONS (1)
  - Blister [Unknown]
